FAERS Safety Report 5810951-9 (Version None)
Quarter: 2008Q3

REPORT INFORMATION
  Report Type: 
  Country: None (occurrence: None)
  Receive Date: 20080716
  Receipt Date: 20080709
  Transmission Date: 20090109
  Serious: Yes (Hospitalization)
  Sender: FDA-Public Use
  Company Number: PHBS2008FR05025

PATIENT
  Sex: Male

DRUGS (9)
  1. LOPRESSOR [Suspect]
     Dosage: 100 MG, BID
     Route: 048
     Dates: start: 20080604, end: 20080609
  2. FLECAINIDE ACETATE [Suspect]
     Dosage: UNK
     Route: 048
  3. AMARYL [Concomitant]
     Dosage: 200 MG, UNK
     Route: 048
  4. KARDEGIC [Concomitant]
  5. COZAAR [Concomitant]
  6. TAHOR [Concomitant]
  7. LEVOTHYROX [Concomitant]
  8. FLUDEX [Concomitant]
  9. PREVISCAN [Concomitant]

REACTIONS (4)
  - ANGIOEDEMA [None]
  - BRONCHIAL OBSTRUCTION [None]
  - DYSPNOEA [None]
  - VOMITING [None]
